FAERS Safety Report 6682902-9 (Version None)
Quarter: 2010Q2

REPORT INFORMATION
  Report Type: 
  Country: None (occurrence: None)
  Receive Date: 20100415
  Receipt Date: 20100408
  Transmission Date: 20101027
  Serious: Yes (Other)
  Sender: FDA-Public Use
  Company Number: B0640107A

PATIENT
  Age: 71 Year
  Sex: Male

DRUGS (6)
  1. AVOLVE [Suspect]
     Indication: DRUG USE FOR UNKNOWN INDICATION
     Dosage: .5MG PER DAY
     Route: 048
     Dates: start: 20100303, end: 20100311
  2. CRESTOR [Suspect]
     Indication: DRUG USE FOR UNKNOWN INDICATION
     Route: 048
  3. ATELEC [Suspect]
     Indication: DRUG USE FOR UNKNOWN INDICATION
     Route: 048
  4. ACTOS [Suspect]
     Indication: DRUG USE FOR UNKNOWN INDICATION
  5. ETHYL ICOSAPENTATE [Suspect]
     Indication: DRUG USE FOR UNKNOWN INDICATION
  6. FLIVAS [Suspect]
     Indication: DRUG USE FOR UNKNOWN INDICATION

REACTIONS (8)
  - ALANINE AMINOTRANSFERASE ABNORMAL [None]
  - ASPARTATE AMINOTRANSFERASE ABNORMAL [None]
  - BLOOD AMYLASE [None]
  - HEPATIC FUNCTION ABNORMAL [None]
  - LOW DENSITY LIPOPROTEIN ABNORMAL [None]
  - NASOPHARYNGITIS [None]
  - OROPHARYNGEAL DISCOMFORT [None]
  - SENSORY DISTURBANCE [None]
